FAERS Safety Report 4959511-2 (Version None)
Quarter: 2006Q1

REPORT INFORMATION
  Report Type: 
  Country: None (occurrence: None)
  Receive Date: 20060331
  Receipt Date: 20051026
  Transmission Date: 20060701
  Serious: Yes (Hospitalization, Other)
  Sender: FDA-Public Use
  Company Number: US-MERCK-0510USA09180

PATIENT
  Age: 52 Year
  Sex: Male
  Weight: 84 kg

DRUGS (6)
  1. ASPIRIN [Concomitant]
     Route: 065
  2. VIOXX [Suspect]
     Indication: HEADACHE
     Route: 048
     Dates: start: 20020101, end: 20030801
  3. ATENOLOL [Concomitant]
     Route: 065
  4. MAVIK [Concomitant]
     Route: 065
  5. LIPITOR [Concomitant]
     Route: 065
  6. NIASPAN [Concomitant]
     Route: 065

REACTIONS (7)
  - CARDIOVASCULAR DISORDER [None]
  - CEREBROVASCULAR ACCIDENT [None]
  - CHEST PAIN [None]
  - DIZZINESS [None]
  - HEADACHE [None]
  - MYOCARDIAL INFARCTION [None]
  - TUNNEL VISION [None]
